FAERS Safety Report 7922197-9 (Version None)
Quarter: 2011Q4

REPORT INFORMATION
  Report Type: 
  Country: None (occurrence: None)
  Receive Date: 20111117
  Receipt Date: 20110201
  Transmission Date: 20120403
  Serious: No
  Sender: FDA-Public Use
  Company Number: US-AMGEN-USASP2011000565

PATIENT
  Age: 59 Year
  Sex: Female

DRUGS (1)
  1. ENBREL [Suspect]
     Indication: PSORIASIS
     Dates: start: 20060401

REACTIONS (6)
  - HAEMORRHAGIC DIATHESIS [None]
  - LACERATION [None]
  - TOOTH FRACTURE [None]
  - LIMB INJURY [None]
  - CONTUSION [None]
  - TOOTH REPAIR [None]
